FAERS Safety Report 9655675 (Version 1)
Quarter: 2013Q4

REPORT INFORMATION
  Report Type: Spontaneous
  Country: DE (occurrence: DE)
  Receive Date: 20131030
  Receipt Date: 20131030
  Transmission Date: 20140711
  Serious: Yes (Life-Threatening, Hospitalization)
  Sender: FDA-Public Use
  Company Number: DE-BIOGENIDEC-2013BI103392

PATIENT
  Age: 52 Year
  Sex: Male

DRUGS (1)
  1. AVONEX [Suspect]
     Indication: RELAPSING-REMITTING MULTIPLE SCLEROSIS
     Route: 030
     Dates: start: 20080401, end: 20130911

REACTIONS (6)
  - Epilepsy [Recovered/Resolved with Sequelae]
  - Coma [Recovered/Resolved with Sequelae]
  - Infection [Recovered/Resolved]
  - Diabetes mellitus [Not Recovered/Not Resolved]
  - Polyneuropathy [Not Recovered/Not Resolved]
  - Pancreatitis [Not Recovered/Not Resolved]
